FAERS Safety Report 17847944 (Version 3)
Quarter: 2020Q3

REPORT INFORMATION
  Report Type: Report from Study
  Country: ES (occurrence: ES)
  Receive Date: 20200601
  Receipt Date: 20200730
  Transmission Date: 20201103
  Serious: Yes (Disabling)
  Sender: FDA-Public Use
  Company Number: ES-SEATTLE GENETICS-2020SGN02372

PATIENT
  Age: 28 Year
  Sex: Male
  Weight: 107 kg

DRUGS (11)
  1. DEXAMETHASONE. [Suspect]
     Active Substance: DEXAMETHASONE
     Indication: HODGKIN^S DISEASE
     Dosage: 20 MILLIGRAM
     Route: 048
     Dates: start: 20200331
  2. CYCLOPHOSPHAMIDE. [Suspect]
     Active Substance: CYCLOPHOSPHAMIDE
     Indication: HODGKIN^S DISEASE
     Dosage: 2625 MILLIGRAM
     Route: 042
     Dates: start: 20200505
  3. ADRIAMYCIN [Suspect]
     Active Substance: DOXORUBICIN HYDROCHLORIDE
     Indication: HODGKIN^S DISEASE
     Dosage: 45 MILLIGRAM
     Route: 042
     Dates: start: 20200331
  4. DEXAMETHASONE. [Suspect]
     Active Substance: DEXAMETHASONE
     Dosage: 40 MILLIGRAM
     Route: 065
  5. ADRIAMYCIN [Suspect]
     Active Substance: DOXORUBICIN HYDROCHLORIDE
     Dosage: 84 MILLIGRAM
     Route: 042
     Dates: start: 20200505
  6. DACARBAZINE. [Suspect]
     Active Substance: DACARBAZINE
     Dosage: 525 MILLIGRAM
     Route: 042
     Dates: start: 20200507
  7. BRENTUXIMAB VEDOTIN [Suspect]
     Active Substance: BRENTUXIMAB VEDOTIN
     Dosage: 180 MILLIGRAM
     Route: 065
     Dates: start: 20200331
  8. DACARBAZINE. [Suspect]
     Active Substance: DACARBAZINE
     Indication: HODGKIN^S DISEASE
     Dosage: 904 MILLIGRAM
     Route: 042
     Dates: start: 20200331
  9. BRENTUXIMAB VEDOTIN [Suspect]
     Active Substance: BRENTUXIMAB VEDOTIN
     Indication: HODGKIN^S DISEASE
     Dosage: 120 MILLIGRAM
     Route: 042
     Dates: start: 20200331
  10. ETOPOSIDE. [Suspect]
     Active Substance: ETOPOSIDE
     Indication: HODGKIN^S DISEASE
     Dosage: 315 MILLIGRAM
     Route: 042
     Dates: start: 20200505
  11. VINBLASTINE [Suspect]
     Active Substance: VINBLASTINE
     Indication: HODGKIN^S DISEASE
     Dosage: 14.5 MILLIGRAM
     Route: 042
     Dates: start: 20200331

REACTIONS (1)
  - Demyelinating polyneuropathy [Not Recovered/Not Resolved]

NARRATIVE: CASE EVENT DATE: 20200515
